FAERS Safety Report 4482314-2 (Version None)
Quarter: 2004Q4

REPORT INFORMATION
  Report Type: 
  Country: None (occurrence: None)
  Receive Date: 20041022
  Receipt Date: 20041014
  Transmission Date: 20050328
  Serious: Yes (Life-Threatening, Hospitalization, Other)
  Sender: FDA-Public Use
  Company Number: BR-MERCK-0410BRA00358

PATIENT
  Age: 68 Year
  Sex: Female

DRUGS (1)
  1. VIOXX [Suspect]
     Indication: UPPER LIMB FRACTURE
     Route: 048
     Dates: start: 20040302, end: 20040101

REACTIONS (2)
  - MYOCARDIAL INFARCTION [None]
  - RENAL FAILURE [None]
